FAERS Safety Report 8076512-9 (Version None)
Quarter: 2011Q4

REPORT INFORMATION
  Report Type: 
  Country: None (occurrence: None)
  Receive Date: 20111221
  Receipt Date: 20111017
  Transmission Date: 20120403
  Serious: Yes (Hospitalization)
  Sender: FDA-Public Use
  Company Number: PHHY2011US17043

PATIENT
  Age: 27 Year
  Sex: Male
  Weight: 63.6 kg

DRUGS (6)
  1. HYDROXYUREA [Concomitant]
  2. HYDROCODONE BITARTRATE [Concomitant]
  3. EXJADE [Suspect]
     Indication: IRON OVERLOAD
     Dosage: 1125 MG, QD, ORAL, 1250 MG DAILY, ORAL
     Route: 048
     Dates: start: 20110225
  4. EXJADE [Suspect]
     Indication: SICKLE CELL ANAEMIA WITH CRISIS
     Dosage: 1125 MG, QD, ORAL, 1250 MG DAILY, ORAL
     Route: 048
     Dates: start: 20110225
  5. EXJADE [Suspect]
     Indication: IRON OVERLOAD
     Dosage: 1125 MG, QD, ORAL, 1250 MG DAILY, ORAL
     Route: 048
     Dates: start: 20110222
  6. EXJADE [Suspect]
     Indication: SICKLE CELL ANAEMIA WITH CRISIS
     Dosage: 1125 MG, QD, ORAL, 1250 MG DAILY, ORAL
     Route: 048
     Dates: start: 20110222

REACTIONS (4)
  - FATIGUE [None]
  - DIARRHOEA [None]
  - SICKLE CELL ANAEMIA WITH CRISIS [None]
  - PAIN [None]
